FAERS Safety Report 8215154-9 (Version None)
Quarter: 2012Q1

REPORT INFORMATION
  Report Type: 
  Country: None (occurrence: None)
  Receive Date: 20120229
  Receipt Date: 20110726
  Transmission Date: 20120608
  Serious: Yes (Hospitalization, Other)
  Sender: FDA-Public Use
  Company Number: PHHY2011US15874

PATIENT
  Age: 62 Year
  Sex: Male

DRUGS (1)
  1. NEORAL [Suspect]
     Indication: RENAL TRANSPLANT
     Dosage: 175 MG, BID, ORAL ; 175 MG, QD, ORAL
     Route: 048
     Dates: start: 20100914

REACTIONS (3)
  - CYSTITIS [None]
  - RENAL IMPAIRMENT [None]
  - HEART RATE DECREASED [None]
